FAERS Safety Report 5172398-0 (Version None)
Quarter: 2006Q4

REPORT INFORMATION
  Report Type: 
  Country: None (occurrence: None)
  Receive Date: 20061213
  Receipt Date: 20061207
  Transmission Date: 20070319
  Serious: Yes (Hospitalization)
  Sender: FDA-Public Use
  Company Number: ZW-GILEAD-2006-0010811

PATIENT
  Age: 41 Year
  Sex: Male
  Weight: 55.2 kg

DRUGS (3)
  1. EMTRICITABINE [Suspect]
     Indication: HIV INFECTION
     Route: 048
     Dates: start: 20050915, end: 20061119
  2. ATAZANAVIR [Suspect]
     Indication: HIV INFECTION
     Route: 048
     Dates: start: 20060915, end: 20061119
  3. DIDANOSINE [Suspect]
     Indication: HIV INFECTION
     Route: 048
     Dates: start: 20050915, end: 20061119

REACTIONS (4)
  - MALARIA [None]
  - PANCYTOPENIA [None]
  - PULMONARY TUBERCULOSIS [None]
  - THROMBOCYTOPENIA [None]
